FAERS Safety Report 13462348 (Version 2)
Quarter: 2017Q2

REPORT INFORMATION
  Report Type: Spontaneous
  Country: FR (occurrence: FR)
  Receive Date: 20170420
  Receipt Date: 20170626
  Transmission Date: 20170830
  Serious: Yes (Other)
  Sender: FDA-Public Use
  Company Number: FR-009507513-1704FRA003942

PATIENT
  Age: 37 Year
  Sex: Female

DRUGS (1)
  1. NEXPLANON [Suspect]
     Active Substance: ETONOGESTREL
     Indication: TRANSDERMAL CONTRACEPTION
     Dosage: 1 DF, UNK
     Route: 062
     Dates: start: 201604

REACTIONS (1)
  - Pregnancy on contraceptive [Unknown]

NARRATIVE: CASE EVENT DATE: 20160615
